FAERS Safety Report 6379026-7 (Version None)
Quarter: 2009Q3

REPORT INFORMATION
  Report Type: 
  Country: None (occurrence: None)
  Receive Date: 20090928
  Receipt Date: 20090921
  Transmission Date: 20100115
  Serious: Yes (Life-Threatening, Hospitalization)
  Sender: FDA-Public Use
  Company Number: PHHO2009IT11589

PATIENT
  Sex: Female
  Weight: 67 kg

DRUGS (3)
  1. AMN107 AMN+CAP [Suspect]
     Dosage: 800 MG, UNK
     Route: 048
     Dates: start: 20090824, end: 20090903
  2. TRIATEC [Concomitant]
     Indication: HYPERTENSION
  3. ASPIRIN [Concomitant]
     Indication: HYPERTENSION

REACTIONS (2)
  - ANGINA UNSTABLE [None]
  - DYSPNOEA [None]
